FAERS Safety Report 8473088-9 (Version None)
Quarter: 2012Q2

REPORT INFORMATION
  Report Type: 
  Country: None (occurrence: None)
  Receive Date: 20120627
  Receipt Date: 20120620
  Transmission Date: 20120825
  Serious: Yes (Other)
  Sender: FDA-Public Use
  Company Number: CA-ROCHE-1081091

PATIENT
  Sex: Male
  Weight: 29.056 kg

DRUGS (7)
  1. PLAQUENIL [Concomitant]
  2. IRON SULFATETHIAMIN COMPOUND TAB [Concomitant]
  3. ATORVASTATIN [Concomitant]
  4. PREDNISONE TAB [Concomitant]
  5. AMLODIPINE [Concomitant]
  6. ACTEMRA [Suspect]
     Indication: RHEUMATOID ARTHRITIS
     Route: 042
     Dates: start: 20111206
  7. ASPIRIN [Concomitant]

REACTIONS (1)
  - VISUAL FIELD DEFECT [None]
